FAERS Safety Report 6630318-3 (Version None)
Quarter: 2010Q1

REPORT INFORMATION
  Report Type: 
  Country: None (occurrence: None)
  Receive Date: 20100311
  Receipt Date: 20100308
  Transmission Date: 20100710
  Serious: Yes (Death)
  Sender: FDA-Public Use
  Company Number: PHHY2010JP13969

PATIENT
  Age: 65 Year
  Sex: Male

DRUGS (2)
  1. DIOVAN [Suspect]
     Indication: HYPERTENSION
     Dosage: 40 MG, QD
     Dates: start: 20090824, end: 20100203
  2. RILUTEK [Concomitant]
     Indication: AMYOTROPHIC LATERAL SCLEROSIS
     Dosage: 100 MG, UNK
     Route: 048
     Dates: start: 20090128

REACTIONS (1)
  - DEATH [None]
